FAERS Safety Report 5970863-7 (Version None)
Quarter: 2008Q4

REPORT INFORMATION
  Report Type: 
  Country: None (occurrence: None)
  Receive Date: 20081127
  Receipt Date: 20081124
  Transmission Date: 20090506
  Serious: Yes (Other)
  Sender: FDA-Public Use
  Company Number: PK-RANBAXY-2008US-19507

PATIENT

DRUGS (4)
  1. MIDAZOLAM HYDROCHLORIDE [Suspect]
     Indication: DRUG USE FOR UNKNOWN INDICATION
     Dosage: UNK, UNK
     Route: 065
  2. FENTANYL [Suspect]
     Indication: ANAESTHESIA
     Dosage: 100 UG, UNK
     Route: 042
  3. PROPOFOL [Suspect]
     Indication: ANAESTHESIA
     Dosage: 100.000000 MG, UNK
     Route: 065
  4. ATRACURIUM BESYLATE [Suspect]
     Indication: ANAESTHESIA
     Dosage: 30.000000 MG, UNK
     Route: 065

REACTIONS (7)
  - ANAPHYLACTIC REACTION [None]
  - CYANOSIS [None]
  - HEART RATE INCREASED [None]
  - HYPOTENSION [None]
  - METABOLIC ACIDOSIS [None]
  - RESPIRATORY ACIDOSIS [None]
  - WHEEZING [None]
